FAERS Safety Report 14540163 (Version 1)
Quarter: 2018Q1

REPORT INFORMATION
  Report Type: Spontaneous
  Country: CA (occurrence: CA)
  Receive Date: 20180216
  Receipt Date: 20180216
  Transmission Date: 20180509
  Serious: No
  Sender: FDA-Public Use
  Company Number: CA-HILL DERMACEUTICALS, INC.-2042156

PATIENT
  Age: 3 Year
  Sex: Male

DRUGS (1)
  1. DERMOTIC [Suspect]
     Active Substance: FLUOCINOLONE ACETONIDE

REACTIONS (1)
  - Swelling [Unknown]
